FAERS Safety Report 5219550-3 (Version None)
Quarter: 2007Q1

REPORT INFORMATION
  Report Type: 
  Country: None (occurrence: None)
  Receive Date: 20070124
  Receipt Date: 20070124
  Transmission Date: 20070707
  Serious: Yes (Other)
  Sender: FDA-Public Use
  Company Number: None

PATIENT
  Age: 29 Year
  Sex: Male
  Weight: 88.905 kg

DRUGS (5)
  1. HALDOL [Suspect]
     Indication: AGITATION
     Dosage: IM
     Route: 030
     Dates: start: 20060912
  2. CLONAZEPAM [Concomitant]
  3. DIPHENHYDRAMINE HCL [Concomitant]
  4. IBUPROFEN [Concomitant]
  5. TRAZODONE HCL [Concomitant]

REACTIONS (4)
  - DRY MOUTH [None]
  - DYSTONIA [None]
  - RESTLESSNESS [None]
  - TARDIVE DYSKINESIA [None]
